FAERS Safety Report 21183301 (Version 2)
Quarter: 2022Q4

REPORT INFORMATION
  Report Type: Spontaneous
  Country: CN (occurrence: CN)
  Receive Date: 20220808
  Receipt Date: 20221004
  Transmission Date: 20230113
  Serious: Yes (Other)
  Sender: FDA-Public Use
  Company Number: CN-SA-SAC20220802001700

PATIENT

DRUGS (1)
  1. DUPIXENT [Suspect]
     Active Substance: DUPILUMAB
     Dosage: UNK
     Route: 065

REACTIONS (9)
  - Tuberculosis [Recovered/Resolved]
  - Pain [Recovered/Resolved]
  - Skin lesion [Recovered/Resolved]
  - Psoriasis [Recovered/Resolved]
  - Eczema [Recovered/Resolved]
  - Blood immunoglobulin E increased [Recovered/Resolved]
  - Rash [Recovered/Resolved]
  - Eosinophil count increased [Recovered/Resolved]
  - Face oedema [Recovered/Resolved]
